FAERS Safety Report 15279267 (Version 1)
Quarter: 2018Q3

REPORT INFORMATION
  Report Type: Spontaneous
  Country: US (occurrence: US)
  Receive Date: 20180730
  Receipt Date: 20180730
  Transmission Date: 20181010
  Serious: Yes (Other)
  Sender: FDA-Public Use
  Company Number: None

PATIENT
  Age: 56 Year
  Sex: Female
  Weight: 91.8 kg

DRUGS (31)
  1. ALBUTEROL. [Concomitant]
     Active Substance: ALBUTEROL
  2. BREO ELLIPTA [Concomitant]
     Active Substance: FLUTICASONE FUROATE\VILANTEROL TRIFENATATE
  3. ONDANSETRON [Concomitant]
     Active Substance: ONDANSETRON
  4. ZETIA [Concomitant]
     Active Substance: EZETIMIBE
  5. SODIUM CHLORIDE. [Concomitant]
     Active Substance: SODIUM CHLORIDE
  6. DUONEB [Concomitant]
     Active Substance: ALBUTEROL SULFATE\IPRATROPIUM BROMIDE
  7. GAMMAGARD LIQUID [Suspect]
     Active Substance: HUMAN IMMUNOGLOBULIN G
     Indication: AUTOIMMUNE DISORDER
     Dosage: ?          QUANTITY:1 BOTTLE;OTHER FREQUENCY:EVERY 3 WEEKS;?
     Route: 042
     Dates: start: 20180729, end: 20180729
  8. ARMODANFINIL [Concomitant]
  9. CEFUROXIME. [Concomitant]
     Active Substance: CEFUROXIME
  10. FOLIC ACID. [Concomitant]
     Active Substance: FOLIC ACID
  11. KAPVAY [Concomitant]
     Active Substance: CLONIDINE HYDROCHLORIDE
  12. FLEXERIL [Concomitant]
     Active Substance: CYCLOBENZAPRINE HYDROCHLORIDE
  13. COQ10 [Concomitant]
     Active Substance: UBIDECARENONE
  14. IBUPROFEN. [Concomitant]
     Active Substance: IBUPROFEN
  15. EPIPEN [Concomitant]
     Active Substance: EPINEPHRINE
  16. QVAR [Concomitant]
     Active Substance: BECLOMETHASONE DIPROPIONATE
  17. CREON [Concomitant]
     Active Substance: PANCRELIPASE AMYLASE\PANCRELIPASE LIPASE\PANCRELIPASE PROTEASE
  18. LOSARTAN. [Concomitant]
     Active Substance: LOSARTAN
  19. GAMMAGARD LIQUID [Suspect]
     Active Substance: HUMAN IMMUNOGLOBULIN G
     Indication: AUTOIMMUNE DISORDER
     Dosage: ?          QUANTITY:1 BOTTLE;OTHER FREQUENCY:3X WEEK;?
     Route: 042
     Dates: start: 20180729, end: 20180729
  20. CLONAZEPAM. [Concomitant]
     Active Substance: CLONAZEPAM
  21. NO DRUG NAME [Concomitant]
  22. SALINE [Concomitant]
     Active Substance: SODIUM CHLORIDE
  23. COLACE [Concomitant]
     Active Substance: DOCUSATE SODIUM
  24. SYNTHROID [Concomitant]
     Active Substance: LEVOTHYROXINE SODIUM
  25. METHOTREXATE. [Concomitant]
     Active Substance: METHOTREXATE
  26. TYLENOL [Concomitant]
     Active Substance: ACETAMINOPHEN
  27. DIAZEPAM. [Concomitant]
     Active Substance: DIAZEPAM
  28. DDAVP [Concomitant]
     Active Substance: DESMOPRESSIN ACETATE
  29. SINGULAIR [Concomitant]
     Active Substance: MONTELUKAST SODIUM
  30. MAGNESIUM [Concomitant]
     Active Substance: MAGNESIUM
  31. CHLORPENRAMINE [Concomitant]

REACTIONS (7)
  - Headache [None]
  - Dyspnoea [None]
  - Nausea [None]
  - Chest discomfort [None]
  - Feeling cold [None]
  - Myalgia [None]
  - Autonomic nervous system imbalance [None]

NARRATIVE: CASE EVENT DATE: 20180729
